FAERS Safety Report 14843098 (Version 1)
Quarter: 2018Q2

REPORT INFORMATION
  Report Type: Spontaneous
  Country: GB (occurrence: GB)
  Receive Date: 20180503
  Receipt Date: 20180503
  Transmission Date: 20180711
  Serious: Yes (Other)
  Sender: FDA-Public Use
  Company Number: PHHY2018GB000630

PATIENT
  Age: 26 Year
  Sex: Female
  Weight: 107 kg

DRUGS (1)
  1. CLINDAMYCIN. [Suspect]
     Active Substance: CLINDAMYCIN
     Indication: SKIN DISORDER
     Route: 065

REACTIONS (4)
  - Diarrhoea [Unknown]
  - Haematochezia [Unknown]
  - Clostridium difficile colitis [Recovered/Resolved]
  - Mucous stools [Unknown]

NARRATIVE: CASE EVENT DATE: 20171228
